FAERS Safety Report 11334731 (Version 1)
Quarter: 2015Q3

REPORT INFORMATION
  Report Type: Spontaneous
  Country: US (occurrence: None)
  Receive Date: 20150731
  Receipt Date: 20150731
  Transmission Date: 20151125
  Serious: No
  Sender: FDA-Public Use
  Company Number: None

PATIENT
  Age: 74 Year
  Sex: Female

DRUGS (18)
  1. FENTANYL. [Concomitant]
     Active Substance: FENTANYL
  2. PHENYTOIN. [Concomitant]
     Active Substance: PHENYTOIN
  3. INSULIN [Concomitant]
     Active Substance: INSULIN NOS
  4. ENOXAPARIN [Concomitant]
     Active Substance: ENOXAPARIN
  5. FLUCYTOSINE. [Concomitant]
     Active Substance: FLUCYTOSINE
  6. LANSOPRAZOLE. [Concomitant]
     Active Substance: LANSOPRAZOLE
  7. LEVETIRACETAM. [Concomitant]
     Active Substance: LEVETIRACETAM
  8. MIDAZOLAM [Concomitant]
     Active Substance: MIDAZOLAM\MIDAZOLAM HYDROCHLORIDE
  9. AMPHOTERICIN B (LIPOSOMAL) [Concomitant]
  10. DEXAMETHASONE. [Concomitant]
     Active Substance: DEXAMETHASONE
  11. DIATRIZOATE [Concomitant]
     Active Substance: DIATRIZOATE MEGLUMINE
  12. ZINC OXIDE. [Concomitant]
     Active Substance: ZINC OXIDE
  13. PHENOBARBITAL. [Suspect]
     Active Substance: PHENOBARBITAL
     Indication: CONVULSION PROPHYLAXIS
     Route: 048
     Dates: start: 20141112, end: 20141119
  14. CHLORHEXADINE [Concomitant]
     Active Substance: CHLORHEXIDINE
  15. DOCUSATE [Concomitant]
     Active Substance: DOCUSATE
  16. POTASSIUM PHOSPHATE [Concomitant]
     Active Substance: POTASSIUM PHOSPHATE
  17. ACETAMINOPHEN. [Concomitant]
     Active Substance: ACETAMINOPHEN
  18. LABETALOL [Concomitant]
     Active Substance: LABETALOL\LABETALOL HYDROCHLORIDE

REACTIONS (1)
  - Anticonvulsant drug level increased [None]

NARRATIVE: CASE EVENT DATE: 20141117
